FAERS Safety Report 7366344-9 (Version None)
Quarter: 2011Q1

REPORT INFORMATION
  Report Type: 
  Country: None (occurrence: None)
  Receive Date: 20110322
  Receipt Date: 20110311
  Transmission Date: 20110831
  Serious: Yes (Other)
  Sender: FDA-Public Use
  Company Number: US-BAXTER-2010BH021596

PATIENT
  Age: 42 Year
  Sex: Male
  Weight: 79 kg

DRUGS (13)
  1. HEPARIN SODIUM INJECTION [Suspect]
     Indication: PULMONARY EMBOLISM
     Route: 040
     Dates: start: 20080813, end: 20080813
  2. LORTAB [Concomitant]
     Indication: PRODUCT USED FOR UNKNOWN INDICATION
     Route: 048
  3. RIBAVIRIN [Suspect]
     Indication: HEPATITIS C
     Route: 065
  4. PROTONIX [Concomitant]
     Indication: PRODUCT USED FOR UNKNOWN INDICATION
     Route: 048
  5. MEPERGAN [Concomitant]
     Indication: PRODUCT USED FOR UNKNOWN INDICATION
     Route: 048
  6. COUMADIN [Concomitant]
     Indication: COAGULOPATHY
     Route: 048
  7. HEPARIN SODIUM INJECTION [Suspect]
     Route: 065
  8. HEPARIN SODIUM 10,000 UNITS IN SODIUM CHLORIDE 0.45% [Suspect]
     Indication: PULMONARY EMBOLISM
     Route: 042
     Dates: start: 20080813, end: 20080819
  9. LISINOPRIL [Concomitant]
     Indication: PRODUCT USED FOR UNKNOWN INDICATION
     Route: 048
  10. INTERFERON [Suspect]
     Indication: HEPATITIS C
     Route: 065
  11. XANAX [Concomitant]
     Indication: PRODUCT USED FOR UNKNOWN INDICATION
     Route: 065
  12. PHENERGAN [Concomitant]
     Indication: PRODUCT USED FOR UNKNOWN INDICATION
     Route: 048
  13. HEPARIN SODIUM INJECTION [Suspect]
     Route: 040
     Dates: start: 20080814, end: 20080814

REACTIONS (15)
  - HAEMOPTYSIS [None]
  - IRRITABILITY [None]
  - MENTAL IMPAIRMENT [None]
  - PRURITUS [None]
  - HEPATITIS C [None]
  - PNEUMONIA STAPHYLOCOCCAL [None]
  - NAUSEA [None]
  - INFLUENZA LIKE ILLNESS [None]
  - MUSCLE ATROPHY [None]
  - WEIGHT DECREASED [None]
  - DEPRESSION [None]
  - OEDEMA PERIPHERAL [None]
  - SKIN DISCOLOURATION [None]
  - MOOD SWINGS [None]
  - FATIGUE [None]
